FAERS Safety Report 11375949 (Version 2)
Quarter: 2015Q3

REPORT INFORMATION
  Report Type: Report from Study
  Country: US (occurrence: US)
  Receive Date: 20150813
  Receipt Date: 20150828
  Transmission Date: 20151125
  Serious: Yes (Death, Hospitalization)
  Sender: FDA-Public Use
  Company Number: US-009507513-1508USA004913

PATIENT
  Age: 60 Year
  Sex: Male
  Weight: 75.5 kg

DRUGS (3)
  1. CYTOXAN [Suspect]
     Active Substance: CYCLOPHOSPHAMIDE
     Indication: PLASMA CELL MYELOMA
     Dosage: 300 MG/M2, QW, FREQUENCY: ON DAYS 1,8,15,22 OF 28 DAY CYCLE
     Route: 042
     Dates: start: 20150626, end: 20150706
  2. VELCADE [Suspect]
     Active Substance: BORTEZOMIB
     Indication: PLASMA CELL MYELOMA
     Dosage: 1.3 MG/M2, QW, FREQUENCY: ON DAYS 1,8,15,22 OF 28 DAY CYCLE
     Route: 058
     Dates: start: 20150626, end: 20150706
  3. DEXAMETHASONE. [Suspect]
     Active Substance: DEXAMETHASONE
     Indication: PLASMA CELL MYELOMA
     Dosage: 40 MG, QW, FREQUENCY ON DAYS 1,8,15,22 OF 28 DAY CYCLE
     Route: 048
     Dates: start: 20150626, end: 20150706

REACTIONS (2)
  - Hypercalcaemia [Recovered/Resolved]
  - Plasma cell myeloma [Fatal]

NARRATIVE: CASE EVENT DATE: 20150709
